FAERS Safety Report 9789185 (Version 2)
Quarter: 2014Q1

REPORT INFORMATION
  Report Type: Spontaneous
  Country: US (occurrence: US)
  Receive Date: 20131230
  Receipt Date: 20140115
  Transmission Date: 20141002
  Serious: Yes (Death)
  Sender: FDA-Public Use
  Company Number: US-FRI-1000052468

PATIENT
  Age: 65 Year
  Sex: Female
  Weight: 63 kg

DRUGS (12)
  1. NAMENDA [Suspect]
     Indication: DEMENTIA
     Dosage: 5 MG
     Dates: start: 20111031, end: 20111106
  2. NAMENDA [Suspect]
     Dosage: 10 MG
     Dates: start: 20111107, end: 20111113
  3. NAMENDA [Suspect]
     Dosage: 5 MG IN AM, 10 MG IN PM
     Dates: start: 20111114, end: 20111120
  4. NAMENDA [Suspect]
     Dosage: 20 MG
     Dates: start: 20111121, end: 20131105
  5. RISPERDAL [Concomitant]
     Dosage: 1 MG
  6. NORVASC [Concomitant]
     Dosage: 5 MG
  7. LOPRESSOR [Concomitant]
     Dosage: 100 MG
  8. ARICEPT [Concomitant]
     Dosage: 10 MG
  9. BYSTOLIC [Concomitant]
     Dosage: 5 MG
  10. OMNARIS [Concomitant]
     Dosage: 50 MCG
     Route: 045
  11. PRINIVIL [Concomitant]
     Dosage: 40 MG
  12. TAZTIA XT [Concomitant]
     Dosage: 360 MG

REACTIONS (1)
  - Cardiac arrest [Fatal]
